FAERS Safety Report 9383786 (Version 1)
Quarter: 2013Q3

REPORT INFORMATION
  Report Type: Spontaneous
  Country: US (occurrence: US)
  Receive Date: 20130704
  Receipt Date: 20130704
  Transmission Date: 20140515
  Serious: No
  Sender: FDA-Public Use
  Company Number: US-B.I. PHARMACEUTICALS,INC./RIDGEFIELD-2013-BI-18785BP

PATIENT
  Age: 87 Year
  Sex: Male

DRUGS (4)
  1. PRADAXA [Suspect]
     Dosage: 300 MG
     Route: 048
     Dates: start: 20130613
  2. ASPIRIN [Concomitant]
     Dosage: 81 MG
     Route: 048
  3. COREG [Concomitant]
     Dosage: 6.25 MG
     Route: 048
  4. NORVASC [Concomitant]
     Indication: HYPERTENSION
     Dosage: 2.5 MG
     Route: 048

REACTIONS (2)
  - Oesophageal pain [Recovered/Resolved]
  - Oesophageal pain [Not Recovered/Not Resolved]
